FAERS Safety Report 7437156-2 (Version None)
Quarter: 2011Q2

REPORT INFORMATION
  Report Type: 
  Country: None (occurrence: None)
  Receive Date: 20110426
  Receipt Date: 20110413
  Transmission Date: 20111010
  Serious: Yes (Other)
  Sender: FDA-Public Use
  Company Number: JP-JNJFOC-20101209033

PATIENT
  Age: 23 Year
  Sex: Male
  Weight: 44 kg

DRUGS (21)
  1. REMICADE [Suspect]
     Route: 042
  2. REMICADE [Suspect]
     Route: 042
  3. REMICADE [Suspect]
     Route: 042
  4. REMICADE [Suspect]
     Route: 042
  5. REMICADE [Suspect]
     Route: 042
  6. REMICADE [Suspect]
     Route: 042
  7. REMICADE [Suspect]
     Route: 042
  8. BIOFERMIN [Concomitant]
     Indication: DIARRHOEA
     Route: 048
  9. REMICADE [Suspect]
     Route: 042
  10. PENTASA [Concomitant]
     Indication: CROHN'S DISEASE
     Route: 048
  11. REMICADE [Suspect]
     Route: 042
  12. REMICADE [Suspect]
     Route: 042
  13. REMICADE [Suspect]
     Route: 042
  14. REMICADE [Suspect]
     Indication: CROHN'S DISEASE
     Route: 042
  15. REMICADE [Suspect]
     Route: 042
  16. REMICADE [Suspect]
     Route: 042
  17. ZANTAC [Concomitant]
     Indication: DUODENAL ULCER
     Route: 048
  18. REMICADE [Suspect]
     Indication: FISTULA
     Route: 042
  19. FERROUS CITRATE [Concomitant]
     Indication: IRON DEFICIENCY ANAEMIA
     Route: 048
  20. REMICADE [Suspect]
     Route: 042
  21. PARIET [Concomitant]
     Indication: DUODENAL ULCER
     Route: 048

REACTIONS (1)
  - PANCREATITIS [None]
